FAERS Safety Report 12140631 (Version 2)
Quarter: 2016Q1

REPORT INFORMATION
  Report Type: Spontaneous
  Country: CZ (occurrence: CZ)
  Receive Date: 20160303
  Receipt Date: 20160314
  Transmission Date: 20160526
  Serious: Yes (Death, Other)
  Sender: FDA-Public Use
  Company Number: CZ-PFIZER INC-2016117708

PATIENT
  Age: 90 Year
  Sex: Male

DRUGS (4)
  1. LYRICA [Suspect]
     Active Substance: PREGABALIN
     Dosage: 75 MG, 2X/DAY, ONCE IN THE MORNING, ONCE IN THE EVENING
  2. ENELBIN /00247502/ [Suspect]
     Active Substance: NAFRONYL OXALATE
     Dosage: UNK
  3. LYRICA [Suspect]
     Active Substance: PREGABALIN
     Dosage: UNK
  4. LYRICA [Suspect]
     Active Substance: PREGABALIN
     Dosage: 75 MG, 1X/DAY
     Dates: end: 20160303

REACTIONS (8)
  - Varicose ulceration [Unknown]
  - Condition aggravated [Unknown]
  - Dry skin [Unknown]
  - Eczema [Unknown]
  - Skin fissures [Unknown]
  - Death [Fatal]
  - Herpes virus infection [Unknown]
  - Rash pruritic [Unknown]
